FAERS Safety Report 12190561 (Version 1)
Quarter: 2016Q1

REPORT INFORMATION
  Report Type: Spontaneous
  Country: US (occurrence: None)
  Receive Date: 20160317
  Receipt Date: 20160317
  Transmission Date: 20160526
  Serious: Yes (Hospitalization)
  Sender: FDA-Public Use
  Company Number: None

PATIENT
  Age: 28 Year
  Sex: Male

DRUGS (1)
  1. MYCOPHENOLATE MOFETIL. [Suspect]
     Active Substance: MYCOPHENOLATE MOFETIL
     Route: 048
     Dates: start: 20151102, end: 20151120

REACTIONS (3)
  - Stevens-Johnson syndrome [None]
  - Dermatitis bullous [None]
  - Erythema multiforme [None]

NARRATIVE: CASE EVENT DATE: 20151201
